FAERS Safety Report 4511816-5 (Version None)
Quarter: 2004Q4

REPORT INFORMATION
  Report Type: 
  Country: None (occurrence: None)
  Receive Date: 20041123
  Receipt Date: 20041110
  Transmission Date: 20050328
  Serious: Yes (Hospitalization, Other)
  Sender: FDA-Public Use
  Company Number: 2004080553

PATIENT
  Sex: Female

DRUGS (13)
  1. NEURONTIN [Suspect]
     Indication: DIABETIC NEUROPATHY
     Dosage: 1800 MG (600 MG, 3 IN 1 D), ORAL
     Route: 048
     Dates: start: 20041001, end: 20041010
  2. FENTANYL [Suspect]
     Indication: ILL-DEFINED DISORDER
     Dosage: 50 MCG, 1 IN 3 D, TRANSDERMAL
     Route: 062
     Dates: start: 20041001, end: 20041003
  3. MYCOPHENOLATE MOFETIL (MYCOPHENOLATE MOFETIL) [Concomitant]
  4. TACROLIMUS [Concomitant]
  5. ASPIRIN [Concomitant]
  6. PREDNISONE [Concomitant]
  7. CALCIUM ACETATE (CALCIUM ACETATE) [Concomitant]
  8. LABETALOL HCL [Concomitant]
  9. ISOSORBIDE DINITRATE [Concomitant]
  10. ENALAPRIL MALEATE [Concomitant]
  11. PAROXETINE HCL [Concomitant]
  12. CLONAZEPAM [Concomitant]
  13. VALPROATE SODIUM [Concomitant]

REACTIONS (9)
  - ACCIDENTAL OVERDOSE [None]
  - CREATININE RENAL CLEARANCE DECREASED [None]
  - DIALYSIS [None]
  - DISEASE PROGRESSION [None]
  - DISORIENTATION [None]
  - EXTRAOCULAR MUSCLE DISORDER [None]
  - MEMORY IMPAIRMENT [None]
  - MENTAL STATUS CHANGES [None]
  - PSYCHOTIC DISORDER [None]
